FAERS Safety Report 9421084 (Version 1)
Quarter: 2013Q3

REPORT INFORMATION
  Report Type: Spontaneous
  Country: US (occurrence: US)
  Receive Date: 20130725
  Receipt Date: 20130725
  Transmission Date: 20140515
  Serious: Yes (Other)
  Sender: FDA-Public Use
  Company Number: CHPA2013US011398

PATIENT
  Age: 59 Year
  Sex: Male

DRUGS (2)
  1. PERDIEM FIBER [Suspect]
     Indication: CONSTIPATION
     Dosage: UNK UNK, QD
  2. HYDROCODONE [Concomitant]
     Indication: MIGRAINE

REACTIONS (4)
  - Hernia [Recovered/Resolved]
  - Malaise [Recovered/Resolved]
  - Vomiting [Recovered/Resolved]
  - Nausea [Recovered/Resolved]
